FAERS Safety Report 11741892 (Version 1)
Quarter: 2015Q4

REPORT INFORMATION
  Report Type: Spontaneous
  Country: US (occurrence: None)
  Receive Date: 20151113
  Receipt Date: 20151113
  Transmission Date: 20160304
  Serious: Yes (Other)
  Sender: FDA-Public Use
  Company Number: None

PATIENT
  Age: 54 Year
  Sex: Female
  Weight: 84.8 kg

DRUGS (11)
  1. DEFINITY [Suspect]
     Active Substance: PERFLUTREN
     Indication: IMAGING PROCEDURE
     Dosage: DURING PROCEDURE
     Dates: start: 20151112, end: 20151112
  2. MVI [Concomitant]
     Active Substance: VITAMINS
  3. ALDACTONE [Concomitant]
     Active Substance: SPIRONOLACTONE
  4. VITAMIN D3 [Concomitant]
     Active Substance: CHOLECALCIFEROL
  5. DEPAKOTE [Concomitant]
     Active Substance: DIVALPROEX SODIUM
  6. LASIX [Concomitant]
     Active Substance: FUROSEMIDE
  7. SUBOXONE [Concomitant]
     Active Substance: BUPRENORPHINE HYDROCHLORIDE\NALOXONE HYDROCHLORIDE
  8. LACTULOSE. [Concomitant]
     Active Substance: LACTULOSE
  9. XIFAXAN [Concomitant]
     Active Substance: RIFAXIMIN
  10. LEDIPASVIR-SOFOSBUVIR [Concomitant]
     Active Substance: LEDIPASVIR\SOFOSBUVIR
  11. SYNTHROID [Concomitant]
     Active Substance: LEVOTHYROXINE SODIUM

REACTIONS (1)
  - Back pain [None]

NARRATIVE: CASE EVENT DATE: 20151112
